FAERS Safety Report 13143396 (Version 1)
Quarter: 2017Q1

REPORT INFORMATION
  Report Type: Spontaneous
  Country: FR (occurrence: FR)
  Receive Date: 20170124
  Receipt Date: 20170124
  Transmission Date: 20170428
  Serious: Yes (Hospitalization)
  Sender: FDA-Public Use
  Company Number: PHHY2014FR176359

PATIENT
  Age: 65 Year
  Sex: Male

DRUGS (1)
  1. REVOLADE [Suspect]
     Active Substance: ELTROMBOPAG
     Indication: IMMUNE THROMBOCYTOPENIC PURPURA
     Dosage: OFTEN
     Route: 048
     Dates: start: 20140521, end: 20140606

REACTIONS (8)
  - Vomiting [Recovered/Resolved]
  - Eosinophilia [Recovered/Resolved]
  - Haemolytic anaemia [Recovered/Resolved]
  - Thrombocytosis [Recovered/Resolved]
  - Nausea [Recovered/Resolved]
  - Hepatic enzyme abnormal [Recovered/Resolved]
  - Blood bilirubin increased [Recovered/Resolved]
  - Dizziness [Recovered/Resolved]

NARRATIVE: CASE EVENT DATE: 20140523
